FAERS Safety Report 8759732 (Version 2)
Quarter: 2012Q4

REPORT INFORMATION
  Report Type: 
  Country: US (occurrence: US)
  Receive Date: 20120829
  Receipt Date: 20121001
  Transmission Date: 20130627
  Serious: Yes (Other)
  Sender: FDA-Public Use
  Company Number: US-ASTRAZENECA-2012SE60584

PATIENT
  Age: 69 Year
  Sex: Female

DRUGS (1)
  1. TOPROL XL [Suspect]
     Route: 048

REACTIONS (6)
  - Fall [Unknown]
  - Pneumonia [Unknown]
  - Hypertension [Unknown]
  - Rotator cuff syndrome [Unknown]
  - Nerve compression [Unknown]
  - Pain [Unknown]
